FAERS Safety Report 10260114 (Version 1)
Quarter: 2014Q2

REPORT INFORMATION
  Report Type: Spontaneous
  Country: FR (occurrence: FR)
  Receive Date: 20140625
  Receipt Date: 20140625
  Transmission Date: 20141212
  Serious: Yes (Hospitalization)
  Sender: FDA-Public Use
  Company Number: FR-ACTAVIS-2014-14232

PATIENT
  Age: 75 Year
  Sex: Female

DRUGS (5)
  1. SERTRALINE HYDROCHLORIDE (UNKNOWN) [Suspect]
     Indication: MAJOR DEPRESSION
     Dosage: 100 MG, DAILY
     Route: 065
  2. SERTRALINE HYDROCHLORIDE (UNKNOWN) [Interacting]
     Dosage: 50 MG, DAILY
     Route: 065
  3. RASAGILINE MESYLATE (UNKNOWN) [Interacting]
     Indication: PARKINSON^S DISEASE
     Dosage: 1 MG, DAILY
     Route: 065
  4. LEVODOPA/CARBIDOPA/ENTACAPONE [Interacting]
     Indication: PARKINSON^S DISEASE
     Dosage: LEVODOPA 200 MG/CARBIDOPA 50 MG/ENTACAPONE 200 MG 3 TIMES A DAY
     Route: 065
  5. AMANTADINE HCL (AMALLC) [Interacting]
     Indication: PARKINSON^S DISEASE
     Dosage: 100 MG, BID
     Route: 065

REACTIONS (3)
  - Serotonin syndrome [Recovered/Resolved]
  - Drug interaction [Recovered/Resolved]
  - Toxicity to various agents [None]
